FAERS Safety Report 4478514-8 (Version None)
Quarter: 2004Q4

REPORT INFORMATION
  Report Type: 
  Country: None (occurrence: None)
  Receive Date: 20041019
  Receipt Date: 20041008
  Transmission Date: 20050328
  Serious: Yes (Hospitalization)
  Sender: FDA-Public Use
  Company Number: PHRM2004FR03065

PATIENT
  Age: 30 Year
  Sex: Male

DRUGS (2)
  1. CLOZAPINE [Suspect]
     Indication: CHILDHOOD PSYCHOSIS
     Dosage: 150 MG/DAY
     Route: 048
  2. LYSANXIA [Concomitant]
     Route: 048

REACTIONS (6)
  - GENERAL PHYSICAL HEALTH DETERIORATION [None]
  - HEPATOSPLENOMEGALY [None]
  - PERICARDIAL RUB [None]
  - PERICARDITIS [None]
  - PULMONARY HYPERTENSION [None]
  - URINARY RETENTION [None]
